FAERS Safety Report 14557614 (Version 1)
Quarter: 2018Q1

REPORT INFORMATION
  Report Type: Spontaneous
  Country: FR (occurrence: FR)
  Receive Date: 20180221
  Receipt Date: 20180221
  Transmission Date: 20180509
  Serious: Yes (Life-Threatening)
  Sender: FDA-Public Use
  Company Number: FR-BAYER-2018-028138

PATIENT
  Age: 16 Year
  Sex: Female
  Weight: 55.96 kg

DRUGS (1)
  1. ASPIRINE 500 MG [Suspect]
     Active Substance: ASPIRIN
     Indication: POISONING DELIBERATE
     Dosage: 20 G, ONCE
     Route: 048
     Dates: start: 20180124, end: 20180124

REACTIONS (4)
  - Vomiting [Recovered/Resolved]
  - Malaise [Recovered/Resolved]
  - Toxicity to various agents [Recovered/Resolved]
  - Intentional overdose [Recovered/Resolved]

NARRATIVE: CASE EVENT DATE: 20180124
